FAERS Safety Report 7981163-8 (Version None)
Quarter: 2011Q4

REPORT INFORMATION
  Report Type: 
  Country: None (occurrence: None)
  Receive Date: 20111212
  Receipt Date: 20111128
  Transmission Date: 20120403
  Serious: Yes (Death)
  Sender: FDA-Public Use
  Company Number: 2011BN000098

PATIENT

DRUGS (7)
  1. ANTIBACTERIALS FOR SYSTEMIC USE [Concomitant]
  2. SULFAMETHOXAZOLE AND TRIMETHOPRIM [Concomitant]
  3. MELPHALAN HYDROCHLORIDE [Suspect]
     Indication: COELIAC DISEASE
     Dosage: 70 MG/M**2;QD;IV
     Route: 042
  4. ANTIFUNGALS FOR SYSTEMIC USE [Concomitant]
  5. FLUDARABINE PHOSPHATE [Suspect]
     Indication: COELIAC DISEASE
     Dosage: 40 MG/M**2;QD;PO
     Route: 048
  6. CLADRIBINE [Concomitant]
  7. G-CSF (GRANULOCYTE COLONY STIMULATING FACTOR) [Suspect]
     Indication: HAEMATOPOIETIC STEM CELL MOBILISATION
     Dosage: 2X10 UG/KG;QD;SC
     Route: 058

REACTIONS (1)
  - ENCEPHALITIS [None]
